FAERS Safety Report 6705239-8 (Version None)
Quarter: 2010Q2

REPORT INFORMATION
  Report Type: 
  Country: None (occurrence: None)
  Receive Date: 20100430
  Receipt Date: 20100423
  Transmission Date: 20101027
  Serious: Yes (Hospitalization, Other)
  Sender: FDA-Public Use
  Company Number: CA-ABBOTT-10P-028-0634894-00

PATIENT
  Sex: Female
  Weight: 62.652 kg

DRUGS (11)
  1. HUMIRA [Suspect]
     Indication: PSORIASIS
     Route: 058
     Dates: start: 20091016
  2. ELTROXIN [Concomitant]
     Indication: THYROID DISORDER
     Route: 048
     Dates: start: 19800101
  3. LOSEC I.V. [Concomitant]
     Indication: GASTRIC DISORDER
     Route: 048
     Dates: start: 20000101
  4. INSULIN N [Concomitant]
     Indication: DIABETES MELLITUS
     Dosage: AT BED TIME
     Route: 058
     Dates: start: 20050101
  5. HUMALOG [Concomitant]
     Indication: DIABETES MELLITUS
     Dosage: 36 UNITS AC MEALS
     Route: 058
     Dates: start: 20050101
  6. PARIET [Concomitant]
     Indication: HYPERTENSION
     Route: 048
     Dates: start: 20080101
  7. CALCIUM [Concomitant]
     Indication: MINERAL SUPPLEMENTATION
     Route: 048
  8. VITAMIN D [Concomitant]
     Indication: VITAMIN SUPPLEMENTATION
     Route: 048
     Dates: start: 20080101
  9. SPIROTONE [Concomitant]
     Indication: HYPERTENSION
     Route: 048
     Dates: start: 20080101
  10. CRESTOR [Concomitant]
     Indication: BLOOD CHOLESTEROL
     Route: 048
  11. SPIRIVA [Concomitant]
     Indication: COUGH
     Route: 048
     Dates: start: 20100101

REACTIONS (4)
  - BREAST MASS [None]
  - DIARRHOEA [None]
  - VOMITING [None]
  - WHITE BLOOD CELL COUNT DECREASED [None]
